FAERS Safety Report 6133662-1 (Version None)
Quarter: 2009Q1

REPORT INFORMATION
  Report Type: 
  Country: None (occurrence: None)
  Receive Date: 20090326
  Receipt Date: 20090320
  Transmission Date: 20090719
  Serious: Yes (Hospitalization)
  Sender: FDA-Public Use
  Company Number: A0774905A

PATIENT
  Age: 67 Year
  Sex: Female
  Weight: 43.1 kg

DRUGS (2)
  1. LAPATINIB [Suspect]
     Indication: THYROID CANCER
     Dosage: 1000MG PER DAY
     Route: 048
     Dates: start: 20090218
  2. DASATINIB [Suspect]
     Indication: THYROID CANCER
     Dosage: 100MG PER DAY
     Route: 048
     Dates: start: 20090218

REACTIONS (4)
  - ANAEMIA [None]
  - DYSPNOEA [None]
  - HAEMOGLOBIN DECREASED [None]
  - PNEUMONIA [None]
